FAERS Safety Report 16473035 (Version 10)
Quarter: 2019Q4

REPORT INFORMATION
  Report Type: Report from Study
  Country: CA (occurrence: CA)
  Receive Date: 20190625
  Receipt Date: 20191217
  Transmission Date: 20200122
  Serious: Yes (Hospitalization, Other)
  Sender: FDA-Public Use
  Company Number: PHHY2016CA070184

PATIENT
  Age: 84 Year
  Sex: Male

DRUGS (11)
  1. SANDOSTATIN [Suspect]
     Active Substance: OCTREOTIDE ACETATE
     Dosage: UNK
     Route: 058
     Dates: start: 20170628
  2. CITALOPRAM [Concomitant]
     Active Substance: CITALOPRAM HYDROBROMIDE
     Indication: PRODUCT USED FOR UNKNOWN INDICATION
     Dosage: 20 MG, UNK
     Route: 065
  3. SANDOSTATIN [Suspect]
     Active Substance: OCTREOTIDE ACETATE
     Indication: CARCINOID TUMOUR
     Dosage: 50 UG, TEST DOSE
     Route: 058
     Dates: start: 20160512, end: 20160512
  4. SANDOSTATIN [Suspect]
     Active Substance: OCTREOTIDE ACETATE
     Dosage: UNK UNK, PRN
     Route: 065
     Dates: start: 2016
  5. SANDOSTATIN [Suspect]
     Active Substance: OCTREOTIDE ACETATE
     Dosage: UNK
     Route: 058
     Dates: start: 20170308
  6. SANDOSTATIN [Suspect]
     Active Substance: OCTREOTIDE ACETATE
     Dosage: UNK
     Route: 058
     Dates: start: 20170703
  7. SANDOSTATIN LAR DEPOT [Suspect]
     Active Substance: OCTREOTIDE ACETATE
     Dosage: 30 MG, QMO (ONCE A MONTH)
     Route: 030
     Dates: start: 20170111
  8. OCTREOTIDE ACETATE. [Concomitant]
     Active Substance: OCTREOTIDE ACETATE
     Indication: CARCINOID TUMOUR
     Dosage: UNK UNK, PRN
     Route: 058
     Dates: start: 2016
  9. DEXILANT [Concomitant]
     Active Substance: DEXLANSOPRAZOLE
     Indication: PRODUCT USED FOR UNKNOWN INDICATION
     Dosage: 60 MG, UNK
     Route: 065
  10. SANDOSTATIN LAR DEPOT [Suspect]
     Active Substance: OCTREOTIDE ACETATE
     Indication: CARCINOID TUMOUR
     Dosage: 20 MG, QMO (ONCE A MONTH)
     Route: 030
     Dates: start: 20160518, end: 20161214
  11. MAVIK [Concomitant]
     Active Substance: TRANDOLAPRIL
     Indication: PRODUCT USED FOR UNKNOWN INDICATION
     Dosage: 1 MG, UNK
     Route: 065

REACTIONS (23)
  - Cerebrovascular accident [Unknown]
  - Sleep disorder due to general medical condition, parasomnia type [Unknown]
  - Eating disorder [Unknown]
  - Decreased appetite [Unknown]
  - Renal failure [Not Recovered/Not Resolved]
  - Blood pressure systolic increased [Unknown]
  - Pain [Unknown]
  - Hypoglycaemia [Unknown]
  - Therapeutic response decreased [Unknown]
  - Fall [Unknown]
  - Renal disorder [Unknown]
  - Injection site pain [Unknown]
  - Hot flush [Unknown]
  - Mobility decreased [Unknown]
  - Condition aggravated [Not Recovered/Not Resolved]
  - Fatigue [Unknown]
  - Injection site haemorrhage [Recovered/Resolved]
  - Diarrhoea [Recovered/Resolved]
  - Hot flush [Recovered/Resolved]
  - Blood glucose decreased [Unknown]
  - Heart rate decreased [Unknown]
  - Diarrhoea [Unknown]
  - Constipation [Unknown]

NARRATIVE: CASE EVENT DATE: 2016
